FAERS Safety Report 5125366-9 (Version None)
Quarter: 2006Q4

REPORT INFORMATION
  Report Type: 
  Country: None (occurrence: None)
  Receive Date: 20061011
  Receipt Date: 20060927
  Transmission Date: 20070319
  Serious: Yes (Hospitalization)
  Sender: FDA-Public Use
  Company Number: PHBS2006JP15232

PATIENT
  Sex: Female

DRUGS (2)
  1. GLEEVEC [Suspect]
     Indication: CHRONIC MYELOID LEUKAEMIA
     Dosage: 400 MG/DAY
     Route: 048
     Dates: start: 20030101, end: 20040601
  2. GLEEVEC [Suspect]
     Dosage: 500 MG/DAY
     Route: 048
     Dates: start: 20040601

REACTIONS (1)
  - OVARIAN HAEMORRHAGE [None]
